FAERS Safety Report 21405543 (Version 1)
Quarter: 2022Q4

REPORT INFORMATION
  Report Type: Spontaneous
  Country: PL (occurrence: PL)
  Receive Date: 20221004
  Receipt Date: 20221004
  Transmission Date: 20230113
  Serious: Yes (Hospitalization, Other)
  Sender: FDA-Public Use
  Company Number: PL-STRIDES ARCOLAB LIMITED-2022SP012259

PATIENT
  Age: 13 Year
  Sex: Male

DRUGS (16)
  1. PREDNISOLONE [Suspect]
     Active Substance: PREDNISOLONE
     Indication: Hydroa vacciniforme
     Dosage: 1 MILLIGRAM/KILOGRAM
     Route: 065
  2. PREDNISOLONE [Suspect]
     Active Substance: PREDNISOLONE
     Indication: Epstein-Barr virus associated lymphoproliferative disorder
     Dosage: UNK, AS A CHOP REGIMEN
     Route: 065
  3. DOXORUBICIN [Suspect]
     Active Substance: DOXORUBICIN
     Indication: Hydroa vacciniforme
     Dosage: UNK, AS A CHOP REGIMEN
     Route: 065
  4. DOXORUBICIN [Suspect]
     Active Substance: DOXORUBICIN
     Indication: Epstein-Barr virus associated lymphoproliferative disorder
  5. CYCLOSPORINE [Suspect]
     Active Substance: CYCLOSPORINE
     Indication: Prophylaxis against graft versus host disease
     Dosage: UNK
     Route: 065
  6. METHOTREXATE [Suspect]
     Active Substance: METHOTREXATE
     Indication: Prophylaxis against graft versus host disease
     Dosage: UNK
     Route: 065
  7. CYCLOPHOSPHAMIDE [Suspect]
     Active Substance: CYCLOPHOSPHAMIDE
     Indication: Hydroa vacciniforme
     Dosage: UNK, AS A CHOP REGIMEN
     Route: 065
  8. CYCLOPHOSPHAMIDE [Suspect]
     Active Substance: CYCLOPHOSPHAMIDE
     Indication: Epstein-Barr virus associated lymphoproliferative disorder
  9. VINCRISTINE [Suspect]
     Active Substance: VINCRISTINE
     Indication: Hydroa vacciniforme
     Dosage: UNK, AS A CHOP REGIMEN
     Route: 065
  10. VINCRISTINE [Suspect]
     Active Substance: VINCRISTINE
     Indication: Epstein-Barr virus associated lymphoproliferative disorder
  11. BORTEZOMIB [Suspect]
     Active Substance: BORTEZOMIB
     Indication: Hydroa vacciniforme
     Dosage: UNK
     Route: 065
  12. BORTEZOMIB [Suspect]
     Active Substance: BORTEZOMIB
     Indication: Epstein-Barr virus associated lymphoproliferative disorder
  13. TABELECLEUCEL [Suspect]
     Active Substance: TABELECLEUCEL
     Indication: Hydroa vacciniforme
     Dosage: UNK, CYCLICAL (ADMINISTERED THREE TIMES IN EACH CYCLE: ON DAYS 1, 8 AND 15)
     Route: 065
  14. TABELECLEUCEL [Suspect]
     Active Substance: TABELECLEUCEL
     Indication: Epstein-Barr virus associated lymphoproliferative disorder
  15. GANCICLOVIR [Concomitant]
     Active Substance: GANCICLOVIR
     Indication: Hydroa vacciniforme
     Dosage: UNK
     Route: 065
  16. GANCICLOVIR [Concomitant]
     Active Substance: GANCICLOVIR
     Indication: Epstein-Barr virus associated lymphoproliferative disorder

REACTIONS (7)
  - Myocarditis [Unknown]
  - Pneumonia [Recovered/Resolved]
  - Cytomegalovirus infection reactivation [Recovered/Resolved]
  - Drug ineffective [Unknown]
  - COVID-19 [Recovered/Resolved]
  - Hypertension [Unknown]
  - Off label use [Unknown]
